FAERS Safety Report 8267077-7 (Version None)
Quarter: 2012Q2

REPORT INFORMATION
  Report Type: 
  Country: None (occurrence: None)
  Receive Date: 20120409
  Receipt Date: 20120328
  Transmission Date: 20120825
  Serious: Yes (Hospitalization, Other)
  Sender: FDA-Public Use
  Company Number: CA-ELI_LILLY_AND_COMPANY-CA201202006925

PATIENT
  Age: 71 Year
  Sex: Female

DRUGS (8)
  1. VITALUX [Concomitant]
  2. TYLENOL (CAPLET) [Concomitant]
     Dosage: UNK, PRN
  3. FORTEO [Suspect]
     Indication: OSTEOPOROSIS
     Dosage: 20 UG, QD
     Route: 058
     Dates: start: 20101211
  4. MULTI-VITAMIN [Concomitant]
  5. ASPIRIN [Concomitant]
     Dosage: 81 MG, UNK
  6. CALCIUM WITH VITAMIN D [Concomitant]
  7. PREDNISONE [Concomitant]
     Dosage: 5 MG, UNK
  8. COD LIVER OIL [Concomitant]

REACTIONS (2)
  - FEMUR FRACTURE [None]
  - HIP ARTHROPLASTY [None]
